FAERS Safety Report 10066405 (Version 1)
Quarter: 2014Q2

REPORT INFORMATION
  Report Type: Spontaneous
  Country: US (occurrence: US)
  Receive Date: 20140408
  Receipt Date: 20140408
  Transmission Date: 20141212
  Serious: No
  Sender: FDA-Public Use
  Company Number: US-009507513-1404USA003404

PATIENT
  Sex: Male

DRUGS (7)
  1. SINEMET [Suspect]
     Indication: PARKINSON^S DISEASE
     Dosage: 2 TABLETS 3 TIMES A DAY
     Route: 048
     Dates: start: 201308
  2. KETOCONAZOLE [Concomitant]
  3. PRILOSEC [Concomitant]
  4. VIAGRA [Concomitant]
  5. ASPIRIN [Concomitant]
  6. CHOLECALCIFEROL [Concomitant]
  7. VITAMIN E [Concomitant]

REACTIONS (1)
  - Polycythaemia [Not Recovered/Not Resolved]
